FAERS Safety Report 13562998 (Version 3)
Quarter: 2017Q3

REPORT INFORMATION
  Report Type: Report from Study
  Country: IT (occurrence: IT)
  Receive Date: 20170519
  Receipt Date: 20170918
  Transmission Date: 20171127
  Serious: No
  Sender: FDA-Public Use
  Company Number: IT-ROCHE-1935832

PATIENT

DRUGS (7)
  1. AZATHIOPRINE. [Suspect]
     Active Substance: AZATHIOPRINE
     Indication: NEPHROTIC SYNDROME
     Route: 065
  2. PREDNISONE. [Suspect]
     Active Substance: PREDNISONE
     Indication: NEPHROTIC SYNDROME
     Route: 048
  3. RITUXIMAB. [Suspect]
     Active Substance: RITUXIMAB
     Indication: NEPHROTIC SYNDROME
     Dosage: SINGLE INFUSION DURING STEROID-INDUCED COMPLETE REMISSION OF NEPHROTIC SYNDROME (NS) FOLLOWED BY A S
     Route: 042
  4. CYCLOSPORINE. [Suspect]
     Active Substance: CYCLOSPORINE
     Indication: NEPHROTIC SYNDROME
     Route: 065
  5. MYCOPHENOLATE MOFETIL. [Suspect]
     Active Substance: MYCOPHENOLATE MOFETIL
     Indication: NEPHROTIC SYNDROME
     Route: 065
  6. RITUXIMAB. [Suspect]
     Active Substance: RITUXIMAB
     Indication: NEPHROTIC SYNDROME
  7. TACROLIMUS. [Suspect]
     Active Substance: TACROLIMUS
     Indication: NEPHROTIC SYNDROME
     Route: 065

REACTIONS (10)
  - Hypogammaglobulinaemia [Unknown]
  - Osteopenia [Unknown]
  - Nephropathy toxic [Unknown]
  - Headache [Unknown]
  - Oropharyngeal pain [Unknown]
  - Varicella [Unknown]
  - Cataract [Unknown]
  - Hypotension [Unknown]
  - Pyrexia [Unknown]
  - Nausea [Unknown]
